FAERS Safety Report 8428891-8 (Version None)
Quarter: 2012Q2

REPORT INFORMATION
  Report Type: 
  Country: None (occurrence: None)
  Receive Date: 20120612
  Receipt Date: 20120608
  Transmission Date: 20120825
  Serious: Yes (Hospitalization, Other)
  Sender: FDA-Public Use
  Company Number: US-PFIZER INC-2012138710

PATIENT
  Sex: Female
  Weight: 56.689 kg

DRUGS (4)
  1. GLIMEPIRIDE [Concomitant]
     Indication: DIABETES MELLITUS
     Dosage: 2 MG, 2X/DAY
  2. LISINOPRIL [Concomitant]
     Indication: HYPERTENSION
     Dosage: 10 MG, 2X/DAY
  3. NORVASC [Suspect]
     Indication: HYPERTENSION
     Dosage: 5 MG, 2X/DAY
     Route: 048
     Dates: start: 20020101, end: 20120301
  4. CLONIDINE [Concomitant]
     Indication: HYPERTENSION
     Dosage: 0.1 MG, UNK

REACTIONS (8)
  - LOOSE TOOTH [None]
  - VISUAL IMPAIRMENT [None]
  - CELLULITIS [None]
  - EYE DISORDER [None]
  - CEREBRAL THROMBOSIS [None]
  - GINGIVAL DISCOLOURATION [None]
  - WEIGHT DECREASED [None]
  - ALOPECIA [None]
